FAERS Safety Report 6070050-0 (Version None)
Quarter: 2009Q1

REPORT INFORMATION
  Report Type: 
  Country: None (occurrence: None)
  Receive Date: 20090209
  Receipt Date: 20090202
  Transmission Date: 20090719
  Serious: Yes (Life-Threatening)
  Sender: FDA-Public Use
  Company Number: PHHY2008DK17232

PATIENT
  Sex: Male

DRUGS (1)
  1. ELIDEL [Suspect]
     Indication: SEBORRHOEIC DERMATITIS
     Dosage: UNK
     Route: 061
     Dates: start: 20041101, end: 20071201

REACTIONS (3)
  - DIFFUSE LARGE B-CELL LYMPHOMA [None]
  - NEOPLASM SKIN [None]
  - SWELLING FACE [None]
